FAERS Safety Report 10439466 (Version 1)
Quarter: 2014Q3

REPORT INFORMATION
  Report Type: Spontaneous
  Country: US (occurrence: US)
  Receive Date: 20140908
  Receipt Date: 20140908
  Transmission Date: 20150326
  Serious: No
  Sender: FDA-Public Use
  Company Number: US-BRISTOL-MYERS SQUIBB COMPANY-21217732

PATIENT
  Age: 54 Year
  Sex: Female

DRUGS (19)
  1. KADIAN [Concomitant]
     Active Substance: MORPHINE SULFATE
  2. SINGULAIR [Concomitant]
     Active Substance: MONTELUKAST SODIUM
  3. VENLAFAXINE HCL [Concomitant]
     Active Substance: VENLAFAXINE HYDROCHLORIDE
  4. KLONOPIN [Concomitant]
     Active Substance: CLONAZEPAM
  5. LISINOPRIL. [Concomitant]
     Active Substance: LISINOPRIL
  6. NABUMETONE. [Concomitant]
     Active Substance: NABUMETONE
  7. TRILIPIX [Concomitant]
     Active Substance: FENOFIBRIC ACID
  8. SYMBICORT [Concomitant]
     Active Substance: BUDESONIDE\FORMOTEROL FUMARATE DIHYDRATE
  9. PENNSAID [Concomitant]
     Active Substance: DICLOFENAC SODIUM
  10. FIBER LAX [Concomitant]
     Active Substance: CALCIUM POLYCARBOPHIL
  11. LIDOCAINE. [Concomitant]
     Active Substance: LIDOCAINE
  12. ZOCOR [Concomitant]
     Active Substance: SIMVASTATIN
  13. EFFEXOR [Concomitant]
     Active Substance: VENLAFAXINE HYDROCHLORIDE
  14. ASPIRIN. [Concomitant]
     Active Substance: ASPIRIN
  15. PROTONIX [Concomitant]
     Active Substance: PANTOPRAZOLE SODIUM
  16. NORCO [Concomitant]
     Active Substance: ACETAMINOPHEN\HYDROCODONE BITARTRATE
  17. SOMA [Concomitant]
     Active Substance: CARISOPRODOL
  18. ABILIFY [Suspect]
     Active Substance: ARIPIPRAZOLE
     Indication: DEPRESSION
     Dates: start: 201303
  19. VENTOLIN [Concomitant]
     Active Substance: ALBUTEROL SULFATE

REACTIONS (4)
  - Contusion [Unknown]
  - Drug ineffective [Unknown]
  - Wrong technique in drug usage process [Unknown]
  - Tremor [Unknown]
